FAERS Safety Report 24705380 (Version 1)
Quarter: 2024Q4

REPORT INFORMATION
  Report Type: Spontaneous
  Country: US (occurrence: US)
  Receive Date: 20241206
  Receipt Date: 20241206
  Transmission Date: 20250114
  Serious: Yes (Death, Hospitalization, Other)
  Sender: RANBAXY
  Company Number: US-SUN PHARMACEUTICAL INDUSTRIES LTD-2024R1-478940

PATIENT
  Sex: Male

DRUGS (1)
  1. ODOMZO [Suspect]
     Active Substance: SONIDEGIB
     Indication: Product used for unknown indication
     Dosage: UNK (200MG CAPSULE ONCE A DAY ON EMPTY STOMACH)
     Route: 065
     Dates: start: 20221213

REACTIONS (2)
  - Embolism [Fatal]
  - Cognitive disorder [Fatal]
